FAERS Safety Report 6029050-9 (Version None)
Quarter: 2009Q1

REPORT INFORMATION
  Report Type: 
  Country: None (occurrence: None)
  Receive Date: 20090106
  Receipt Date: 20081229
  Transmission Date: 20090719
  Serious: Yes (Other)
  Sender: FDA-Public Use
  Company Number: IT-ELI_LILLY_AND_COMPANY-IT200812005888

PATIENT
  Sex: Female

DRUGS (3)
  1. ZYPREXA [Suspect]
     Indication: HALLUCINATION
     Dosage: 5 MG, DAILY (1/D)
     Route: 048
     Dates: start: 20081101, end: 20081117
  2. INDERAL [Concomitant]
     Dosage: 40 MG, UNK
  3. CORDARONE [Concomitant]

REACTIONS (1)
  - THROMBOCYTOPENIA [None]
